FAERS Safety Report 10403016 (Version 1)
Quarter: 2014Q3

REPORT INFORMATION
  Report Type: Spontaneous
  Country: FR (occurrence: FR)
  Receive Date: 20140822
  Receipt Date: 20140822
  Transmission Date: 20150326
  Serious: Yes (Hospitalization)
  Sender: FDA-Public Use
  Company Number: FR-BRISTOL-MYERS SQUIBB COMPANY-21315031

PATIENT
  Age: 68 Year
  Sex: Female

DRUGS (8)
  1. COUMADINE [Suspect]
     Active Substance: WARFARIN SODIUM
     Route: 048
     Dates: start: 20140419, end: 20140426
  2. FOLIC ACID. [Concomitant]
     Active Substance: FOLIC ACID
  3. LIPANTHYL [Concomitant]
     Active Substance: FENOFIBRATE
  4. PREVISCAN [Interacting]
     Active Substance: FLUINDIONE
     Indication: PULMONARY EMBOLISM
     Route: 048
     Dates: start: 20140321, end: 20140419
  5. DOLIPRANE [Concomitant]
     Active Substance: ACETAMINOPHEN
  6. LOVENOX [Concomitant]
     Active Substance: ENOXAPARIN SODIUM
  7. NORFLOXACIN [Concomitant]
     Active Substance: NORFLOXACIN
  8. INEXIUM [Concomitant]
     Active Substance: ESOMEPRAZOLE

REACTIONS (5)
  - Drug reaction with eosinophilia and systemic symptoms [Recovered/Resolved]
  - Agranulocytosis [Unknown]
  - Renal failure acute [Unknown]
  - Hepatocellular injury [Unknown]
  - Drug interaction [Unknown]

NARRATIVE: CASE EVENT DATE: 20140413
